FAERS Safety Report 14259921 (Version 2)
Quarter: 2018Q2

REPORT INFORMATION
  Report Type: Spontaneous
  Country: US (occurrence: US)
  Receive Date: 20171207
  Receipt Date: 20180508
  Transmission Date: 20180711
  Serious: No
  Sender: FDA-Public Use
  Company Number: US-VIFOR (INTERNATIONAL) INC.-VIT-2017-10739

PATIENT
  Age: 67 Year
  Sex: Male

DRUGS (16)
  1. LISINOPRIL. [Concomitant]
     Active Substance: LISINOPRIL
  2. CARVEDILOL. [Concomitant]
     Active Substance: CARVEDILOL
  3. ANDROGEL [Concomitant]
     Active Substance: TESTOSTERONE
  4. GLIPIZIDE. [Concomitant]
     Active Substance: GLIPIZIDE
  5. CARDURA [Concomitant]
     Active Substance: DOXAZOSIN MESYLATE
  6. LOVASTATIN. [Concomitant]
     Active Substance: LOVASTATIN
  7. PERCOCET [Concomitant]
     Active Substance: ACETAMINOPHEN\OXYCODONE HYDROCHLORIDE
  8. ACETYLSALICYLIC ACID [Concomitant]
     Active Substance: ASPIRIN
  9. VELTASSA [Suspect]
     Active Substance: PATIROMER
     Route: 048
     Dates: start: 20171026
  10. CALCITRIOL. [Concomitant]
     Active Substance: CALCITRIOL
  11. FUROSEMIDE. [Concomitant]
     Active Substance: FUROSEMIDE
  12. OMEPRAZOLE. [Concomitant]
     Active Substance: OMEPRAZOLE
  13. OSTEO BI-FLEX ADV DOUBLE ST [Concomitant]
  14. VELTASSA [Suspect]
     Active Substance: PATIROMER
     Indication: HYPERKALAEMIA
     Dates: start: 201710
  15. DOXAZOSIN MESILATE [Concomitant]
     Active Substance: DOXAZOSIN MESYLATE
  16. FENOFIBRATE. [Concomitant]
     Active Substance: FENOFIBRATE

REACTIONS (8)
  - Muscle spasms [Unknown]
  - Drug ineffective [Unknown]
  - Oropharyngeal pain [Unknown]
  - Asthenia [Unknown]
  - Pharyngeal oedema [Unknown]
  - Aphonia [Unknown]
  - Pruritus [Unknown]
  - Fatigue [Unknown]

NARRATIVE: CASE EVENT DATE: 2017
